FAERS Safety Report 5146840-5 (Version None)
Quarter: 2006Q4

REPORT INFORMATION
  Report Type: 
  Country: None (occurrence: None)
  Receive Date: 20061107
  Receipt Date: 20061107
  Transmission Date: 20070319
  Serious: No
  Sender: FDA-Public Use
  Company Number: None

PATIENT
  Age: 29 Year
  Sex: Female
  Weight: 54.4316 kg

DRUGS (2)
  1. BUPROPION HCL [Suspect]
     Indication: ANXIETY
     Dosage: 150 MG     2 PER DAY    PO
     Route: 048
     Dates: start: 20060624, end: 20060731
  2. BUPROPION HCL [Suspect]
     Indication: DEPRESSION
     Dosage: 150 MG     2 PER DAY    PO
     Route: 048
     Dates: start: 20060624, end: 20060731

REACTIONS (6)
  - DRUG INEFFECTIVE [None]
  - MENTAL DISORDER [None]
  - NIGHTMARE [None]
  - PHARMACEUTICAL PRODUCT COMPLAINT [None]
  - SUICIDAL IDEATION [None]
  - THERAPEUTIC RESPONSE UNEXPECTED WITH DRUG SUBSTITUTION [None]
